FAERS Safety Report 6651676-X (Version None)
Quarter: 2010Q1

REPORT INFORMATION
  Report Type: 
  Country: None (occurrence: None)
  Receive Date: 20100322
  Receipt Date: 20100310
  Transmission Date: 20100710
  Serious: Yes (Death, Other)
  Sender: FDA-Public Use
  Company Number: 1000011778

PATIENT
  Age: 77 Year
  Sex: Male

DRUGS (3)
  1. ESCITALOPRAM [Suspect]
     Indication: DEPRESSION
     Dosage: 5 MG (5 MG, 1 IN 1 D), ORAL
     Route: 048
     Dates: start: 20091001
  2. ANTIHYPERTENSIVES [Concomitant]
  3. ANTIAGGREGANT THERAPY [Concomitant]

REACTIONS (3)
  - CIRCULATORY COLLAPSE [None]
  - COMA [None]
  - HALLUCINATION, VISUAL [None]
